FAERS Safety Report 7687795-9 (Version None)
Quarter: 2011Q3

REPORT INFORMATION
  Report Type: 
  Country: None (occurrence: None)
  Receive Date: 20110817
  Receipt Date: 20110805
  Transmission Date: 20111222
  Serious: Yes (Hospitalization)
  Sender: FDA-Public Use
  Company Number: US-ELI_LILLY_AND_COMPANY-US201005001930

PATIENT
  Sex: Female
  Weight: 50.34 kg

DRUGS (3)
  1. FLUVAX [Concomitant]
  2. FORTEO [Suspect]
     Dosage: 20 UG, QD
     Route: 065
  3. FORTEO [Suspect]
     Indication: OSTEOPOROSIS
     Dosage: 20 UG, DAILY (1/D)

REACTIONS (7)
  - CHRONIC OBSTRUCTIVE PULMONARY DISEASE [None]
  - PATELLA FRACTURE [None]
  - NASAL CONGESTION [None]
  - RIB FRACTURE [None]
  - PAIN [None]
  - BLADDER DISORDER [None]
  - MALAISE [None]
